FAERS Safety Report 23500341 (Version 2)
Quarter: 2024Q1

REPORT INFORMATION
  Report Type: Spontaneous
  Country: MA (occurrence: MA)
  Receive Date: 20240208
  Receipt Date: 20240219
  Transmission Date: 20240410
  Serious: Yes (Death, Life-Threatening, Hospitalization, Other)
  Sender: FDA-Public Use
  Company Number: MA-Accord-405528

PATIENT
  Age: 63 Year
  Sex: Female

DRUGS (10)
  1. GEMCITABINE [Suspect]
     Active Substance: GEMCITABINE
     Indication: Adenocarcinoma pancreas
     Dosage: 1000 MG/M2 ON DAY 1 AND DAY 8, 21 DAYS CYCLE
  2. TINZAPARIN SODIUM [Concomitant]
     Active Substance: TINZAPARIN SODIUM
     Indication: Anticoagulant therapy
     Dosage: 8000 UI PER DAY
  3. MORPHINE [Concomitant]
     Active Substance: MORPHINE
     Indication: Symptomatic treatment
  4. ONDANSETRON [Concomitant]
     Active Substance: ONDANSETRON
     Indication: Symptomatic treatment
  5. ALPRAZOLAM [Concomitant]
     Active Substance: ALPRAZOLAM
     Indication: Symptomatic treatment
  6. HYDROXYZINE [Concomitant]
     Active Substance: HYDROXYZINE HYDROCHLORIDE
     Indication: Symptomatic treatment
  7. PANTOPRAZOLE [Concomitant]
     Active Substance: PANTOPRAZOLE
     Indication: Symptomatic treatment
  8. TRIMEBUTINE [Concomitant]
     Active Substance: TRIMEBUTINE
     Indication: Symptomatic treatment
  9. PHLOROGLUCINOL [Concomitant]
     Active Substance: PHLOROGLUCINOL
     Indication: Symptomatic treatment
  10. FUROSEMIDE [Concomitant]
     Active Substance: FUROSEMIDE
     Indication: Symptomatic treatment

REACTIONS (2)
  - Interstitial lung disease [Fatal]
  - Acute kidney injury [Unknown]
